FAERS Safety Report 8940583 (Version 1)
Quarter: 2012Q4

REPORT INFORMATION
  Report Type: 
  Country: US (occurrence: US)
  Receive Date: 20121203
  Receipt Date: 20121203
  Transmission Date: 20130627
  Serious: No
  Sender: FDA-Public Use
  Company Number: US-ASTRAZENECA-2012SE74773

PATIENT
  Age: 64 Year
  Sex: Male
  Weight: 81.6 kg

DRUGS (14)
  1. BRILINTA [Suspect]
     Indication: CORONARY ARTERY OCCLUSION
     Route: 048
     Dates: start: 20120913, end: 20121004
  2. BRILINTA [Suspect]
     Indication: STENT PLACEMENT
     Route: 048
     Dates: start: 20120913, end: 20121004
  3. BRILINTA [Suspect]
     Indication: CORONARY ARTERY OCCLUSION
     Route: 048
  4. BRILINTA [Suspect]
     Indication: STENT PLACEMENT
     Route: 048
  5. LISINOPRIL [Concomitant]
     Indication: HYPERTENSION
     Route: 048
  6. METOPROLOL TARTRATE [Concomitant]
     Indication: HYPERTENSION
     Route: 048
  7. NAPROXEN [Concomitant]
     Indication: IRITIS
     Route: 048
  8. FLOMAX [Concomitant]
     Route: 048
  9. TRAMADOL HCL [Concomitant]
     Indication: PAIN
     Route: 048
  10. GABAPENTIN [Concomitant]
     Indication: MUSCLE SPASMS
     Route: 048
  11. CYCLOBENZAPRIL [Concomitant]
     Indication: MUSCLE SPASMS
     Route: 048
  12. PRAVACHOL [Concomitant]
     Route: 048
  13. PRILOSEC OTC [Concomitant]
     Dosage: DAILY
     Route: 048
  14. ASA [Concomitant]
     Route: 048

REACTIONS (8)
  - Fatigue [Unknown]
  - Pain in extremity [Recovered/Resolved]
  - Heart rate increased [Recovered/Resolved]
  - Malaise [Unknown]
  - Dyspnoea [Unknown]
  - Dizziness [Unknown]
  - Nausea [Recovered/Resolved]
  - Drug dose omission [Unknown]
